FAERS Safety Report 23606988 (Version 1)
Quarter: 2024Q1

REPORT INFORMATION
  Report Type: Spontaneous
  Country: US (occurrence: None)
  Receive Date: 20240307
  Receipt Date: 20240307
  Transmission Date: 20240410
  Serious: Yes (Hospitalization)
  Sender: FDA-Public Use
  Company Number: None

PATIENT
  Sex: Male

DRUGS (6)
  1. CREON [Suspect]
     Active Substance: PANCRELIPASE AMYLASE\PANCRELIPASE LIPASE\PANCRELIPASE PROTEASE
     Indication: Cystic fibrosis
     Dosage: OTHER QUANTITY : 24000-76000 UNIT;?FREQUENCY : AS DIRECTED;?
     Route: 048
     Dates: start: 20231031
  2. ALBUTEROL [Concomitant]
  3. ATROVENT [Concomitant]
     Active Substance: IPRATROPIUM BROMIDE
  4. BUDESONIDE [Concomitant]
     Active Substance: BUDESONIDE
  5. VITAMINS [Concomitant]
     Active Substance: VITAMINS
  6. PEG3350 POW [Concomitant]

REACTIONS (1)
  - Surgery [None]
